FAERS Safety Report 13600666 (Version 6)
Quarter: 2017Q4

REPORT INFORMATION
  Report Type: Spontaneous
  Country: US (occurrence: US)
  Receive Date: 20170601
  Receipt Date: 20171102
  Transmission Date: 20180320
  Serious: Yes (Hospitalization)
  Sender: FDA-Public Use
  Company Number: US-PFIZER INC-2017238016

PATIENT
  Age: 57 Year
  Sex: Female

DRUGS (2)
  1. NICOTROL [Suspect]
     Active Substance: NICOTINE
     Indication: SMOKING CESSATION THERAPY
     Dosage: UNK
     Route: 055
  2. NICOTROL [Suspect]
     Active Substance: NICOTINE
     Dosage: 10 MG, UNK
     Route: 055

REACTIONS (6)
  - Drug intolerance [Recovered/Resolved]
  - Drug dose omission [Recovered/Resolved]
  - Drug ineffective [Recovered/Resolved]
  - Product storage error [Recovered/Resolved]
  - Poor quality drug administered [Recovered/Resolved]
  - Product quality issue [Recovered/Resolved]

NARRATIVE: CASE EVENT DATE: 201705
